FAERS Safety Report 24186786 (Version 3)
Quarter: 2024Q4

REPORT INFORMATION
  Report Type: Spontaneous
  Country: US (occurrence: US)
  Receive Date: 20240808
  Receipt Date: 20241230
  Transmission Date: 20250115
  Serious: No
  Sender: MERCK
  Company Number: US-009507513-2407USA009437

PATIENT
  Sex: Female

DRUGS (19)
  1. WINREVAIR [Suspect]
     Active Substance: SOTATERCEPT-CSRK
     Indication: Pulmonary arterial hypertension
     Dosage: 23.8 MILLIGRAM, 10.2 MG, ONE TIME DOSE (0.3 MG X 34 KG), Q3W
     Route: 058
     Dates: start: 20240627
  2. REMODULIN [Suspect]
     Active Substance: TREPROSTINIL
     Indication: Pulmonary arterial hypertension
     Dosage: UNK
     Route: 058
     Dates: start: 2014, end: 202104
  3. REMODULIN [Suspect]
     Active Substance: TREPROSTINIL
     Dosage: 0.151 MICROGRAM PER KILOGRAM
     Route: 058
  4. REMODULIN [Suspect]
     Active Substance: TREPROSTINIL
     Dosage: 0.125 MICROGRAM PER KILOGRAM
     Route: 058
     Dates: start: 202205, end: 202205
  5. REMODULIN [Suspect]
     Active Substance: TREPROSTINIL
     Dosage: 0.151 MICROGRAM PER KILOGRAM
     Route: 058
     Dates: start: 202205
  6. REMODULIN [Suspect]
     Active Substance: TREPROSTINIL
     Dosage: 0.121 MICROGRAM PER KILOGRAM
     Route: 058
  7. REMODULIN [Suspect]
     Active Substance: TREPROSTINIL
     Dosage: 0.138 MICROGRAM PER KILOGRAM
     Route: 058
  8. IBUPROFEN [Suspect]
     Active Substance: IBUPROFEN
     Indication: Migraine
     Dosage: 150 MG, PRN
     Route: 048
  9. IBUPROFEN [Suspect]
     Active Substance: IBUPROFEN
     Indication: Pyrexia
  10. IBUPROFEN [Suspect]
     Active Substance: IBUPROFEN
     Indication: Infusion site pain
  11. TYLENOL [Suspect]
     Active Substance: ACETAMINOPHEN
     Indication: Migraine
  12. AMBRISENTAN [Concomitant]
     Active Substance: AMBRISENTAN
     Dosage: 10 MILLIGRAM
     Dates: start: 20180417
  13. GABAPENTIN [Concomitant]
     Active Substance: GABAPENTIN
     Dosage: 100 MILLIGRAM
     Dates: start: 20230510
  14. LIDOCAINE [Concomitant]
     Active Substance: LIDOCAINE
     Dosage: 5 PERCENT, ORMULATION: PATCH
     Dates: start: 20240216
  15. LORATADINE [Concomitant]
     Active Substance: LORATADINE
     Dosage: 5 MG/ML, FORMULATION: SOLUTION
     Dates: start: 20141017
  16. TADALAFIL [Concomitant]
     Active Substance: TADALAFIL
     Dosage: 20 MILLIGRAM
     Route: 048
     Dates: start: 20240612
  17. MILRINONE LACTATE [MILRINONE] [Concomitant]
     Dosage: UNK
     Dates: start: 202407
  18. CHILDREN^S MULTIVITAMIN [Concomitant]
     Route: 048
  19. ASPIRIN [Concomitant]
     Active Substance: ASPIRIN
     Dosage: 81 MILLIGRAM
     Route: 048

REACTIONS (2)
  - Migraine [Not Recovered/Not Resolved]
  - Off label use [Unknown]

NARRATIVE: CASE EVENT DATE: 20240101
